FAERS Safety Report 8837348 (Version 1)
Quarter: 2012Q4

REPORT INFORMATION
  Report Type: 
  Country: US (occurrence: US)
  Receive Date: 20121012
  Receipt Date: 20121012
  Transmission Date: 20130627
  Serious: Yes (Other)
  Sender: FDA-Public Use
  Company Number: US-BAYER-2012-104709

PATIENT
  Age: 55 Year
  Sex: Female
  Weight: 52.15 kg

DRUGS (1)
  1. EPHEDRINE SULFATE\GUAIFENESIN [Suspect]
     Indication: ASTHMA PROPHYLAXIS
     Dosage: 2.5 TAB, QD
     Route: 048
     Dates: start: 20121002

REACTIONS (4)
  - Drug ineffective [None]
  - Dyspnoea [None]
  - Chest discomfort [None]
  - Product quality issue [None]
